FAERS Safety Report 15939316 (Version 1)
Quarter: 2019Q1

REPORT INFORMATION
  Report Type: Report from Study
  Country: ZA (occurrence: ZA)
  Receive Date: 20190208
  Receipt Date: 20190208
  Transmission Date: 20190417
  Serious: Yes (Hospitalization)
  Sender: FDA-Public Use
  Company Number: ZA-SA-2019SA031787

PATIENT
  Age: 77 Year
  Sex: Female

DRUGS (10)
  1. ASPAVOR [Concomitant]
     Active Substance: ATORVASTATIN
     Dosage: 10 MG, QD
     Dates: start: 20181112
  2. NOVORAPID [Concomitant]
     Active Substance: INSULIN ASPART
     Dosage: 8 IU, TID
     Dates: start: 20181112
  3. PURESIS [Concomitant]
     Active Substance: FUROSEMIDE
     Dosage: 20 MG, QD
     Dates: start: 20181112
  4. TOUJEO [Suspect]
     Active Substance: INSULIN GLARGINE
     Dosage: BED TIME- 14 U, QD
     Dates: start: 20181112
  5. NO STUDY DRUG GIVEN [Suspect]
     Active Substance: UNSPECIFIED INGREDIENT
  6. ECOTRIN [Concomitant]
     Active Substance: ASPIRIN
     Dosage: BEFORE VREAKFAST- 81 MG, QD
     Dates: start: 20181112
  7. ZANTAC [Concomitant]
     Active Substance: RANITIDINE HYDROCHLORIDE
     Dosage: 10 MG, QD
     Dates: start: 20181112
  8. BILOCOR [Concomitant]
     Active Substance: BISOPROLOL FUMARATE
     Dosage: AFTER BREAKFAST- 0.25 MG, QD
     Dates: start: 20181112
  9. AMLOC [AMLODIPINE BESILATE] [Concomitant]
     Dosage: 10 MG, QD
     Dates: start: 20181112
  10. ISMO [Concomitant]
     Active Substance: ISOSORBIDE MONONITRATE
     Dosage: 20 MG, BID
     Dates: start: 20181112

REACTIONS (2)
  - Influenza [Recovered/Resolved]
  - Blood glucose increased [Recovered/Resolved]

NARRATIVE: CASE EVENT DATE: 20190122
